FAERS Safety Report 13009673 (Version 1)
Quarter: 2016Q4

REPORT INFORMATION
  Report Type: Spontaneous
  Country: SE (occurrence: SE)
  Receive Date: 20161208
  Receipt Date: 20161208
  Transmission Date: 20170207
  Serious: Yes (Other)
  Sender: FDA-Public Use
  Company Number: SE-BAYER-2016-227622

PATIENT
  Age: 27 Year
  Sex: Female

DRUGS (2)
  1. MIRENA [Suspect]
     Active Substance: LEVONORGESTREL
     Indication: ENDOMETRIOSIS
  2. MIRENA [Suspect]
     Active Substance: LEVONORGESTREL
     Indication: ENDOMETRIOSIS
     Dosage: 20 MCG/24HR, CONT
     Route: 015
     Dates: start: 20160913, end: 20161114

REACTIONS (2)
  - Pruritus [Unknown]
  - Vulvovaginal pruritus [Unknown]

NARRATIVE: CASE EVENT DATE: 20160913
